FAERS Safety Report 26037822 (Version 1)
Quarter: 2025Q4

REPORT INFORMATION
  Report Type: Spontaneous
  Country: US (occurrence: US)
  Receive Date: 20251112
  Receipt Date: 20251112
  Transmission Date: 20260118
  Serious: Yes (Other)
  Sender: BRACCO
  Company Number: US-BRACCO-2025US01407

PATIENT
  Sex: Male

DRUGS (21)
  1. LUMASON [Suspect]
     Active Substance: SULFUR HEXAFLUORIDE
     Indication: Echocardiogram
     Dosage: 2 ML, SINGLE
     Route: 042
     Dates: start: 20250301, end: 20250301
  2. LUMASON [Suspect]
     Active Substance: SULFUR HEXAFLUORIDE
     Indication: Echocardiogram
     Dosage: 2 ML, SINGLE
     Route: 042
     Dates: start: 20250301, end: 20250301
  3. LUMASON [Suspect]
     Active Substance: SULFUR HEXAFLUORIDE
     Indication: Echocardiogram
     Dosage: 2 ML, SINGLE
     Route: 042
     Dates: start: 20250301, end: 20250301
  4. ACETAMINOPHEN [Concomitant]
     Active Substance: ACETAMINOPHEN
  5. ALDACTONE [Concomitant]
     Active Substance: SPIRONOLACTONE
     Dosage: 25 MG, 1 TABLET  QD
     Route: 048
  6. AMARYL [Concomitant]
     Active Substance: GLIMEPIRIDE
     Dosage: 2 MG
  7. ASPIRIN [Concomitant]
     Active Substance: ASPIRIN
     Dosage: 1 TABLET
  8. COZAAR [Concomitant]
     Active Substance: LOSARTAN POTASSIUM
     Dosage: 25 MG 1 TABLET, QD
     Route: 048
  9. FARXIGA [Concomitant]
     Active Substance: DAPAGLIFLOZIN PROPANEDIOL
     Dosage: 10 MG TABLET QD
  10. GABAPENTIN [Concomitant]
     Active Substance: GABAPENTIN
     Dosage: 100 MG, TID
     Route: 048
  11. GLUCOPHAGE XR [Concomitant]
     Active Substance: METFORMIN HYDROCHLORIDE
     Dosage: 500 MG, QD
  12. JARDIANCE [Concomitant]
     Active Substance: EMPAGLIFLOZIN
     Dosage: 10 MG, QD
     Route: 048
  13. Multivitamin and Elements Tablets (29-ii) [Concomitant]
     Dosage: 1 TABLET BY MOUTH ONCE DAILY FOR 30 DAYS.
     Route: 048
  14. NICODERM CQ [Concomitant]
     Active Substance: NICOTINE
     Dosage: 14 MG, QD
     Route: 062
  15. NICORETTE FRUIT CHILL [Concomitant]
     Active Substance: NICOTINE
     Indication: Smoking cessation therapy
     Dosage: 2 MG, 1 EACH BY MOUTH EVERY 1 HOUR AS NEEDED
     Route: 048
  16. PLAVIX [Concomitant]
     Active Substance: CLOPIDOGREL BISULFATE
     Dosage: 75 MG, QD
     Route: 048
  17. PROTONIX [Concomitant]
     Active Substance: PANTOPRAZOLE SODIUM
     Dosage: 40 MG TWICE A DAY BEFORE MEALS
     Route: 048
  18. SENOKOT [Concomitant]
     Active Substance: SENNOSIDES
     Dosage: 8.6 MG TABL
  19. TOPROL XL [Concomitant]
     Active Substance: METOPROLOL SUCCINATE
     Dosage: 25 MG
  20. TORSEMIDE [Concomitant]
     Active Substance: TORSEMIDE
     Dosage: 20 MG TABLET
  21. ZETIA [Concomitant]
     Active Substance: EZETIMIBE
     Dosage: 10 MG
     Route: 048

REACTIONS (1)
  - Hypersensitivity [Recovered/Resolved]

NARRATIVE: CASE EVENT DATE: 20250301
